FAERS Safety Report 19202690 (Version 1)
Quarter: 2021Q2

REPORT INFORMATION
  Report Type: Spontaneous
  Country: US (occurrence: US)
  Receive Date: 20210430
  Receipt Date: 20210430
  Transmission Date: 20210717
  Serious: Yes (Other)
  Sender: FDA-Public Use
  Company Number: US-ELI_LILLY_AND_COMPANY-US202104009287

PATIENT
  Sex: Female

DRUGS (2)
  1. TRULICITY [Suspect]
     Active Substance: DULAGLUTIDE
     Indication: PRODUCT USED FOR UNKNOWN INDICATION
     Dosage: 1.5 MG, UNKNOWN
     Route: 065
     Dates: start: 202102
  2. TRULICITY [Suspect]
     Active Substance: DULAGLUTIDE
     Dosage: 1.5 MG, UNKNOWN
     Route: 065
     Dates: start: 202103

REACTIONS (8)
  - Nodule [Not Recovered/Not Resolved]
  - Colitis [Unknown]
  - Gastrointestinal pain [Not Recovered/Not Resolved]
  - Blood urine present [Unknown]
  - Constipation [Not Recovered/Not Resolved]
  - Pancreatitis [Unknown]
  - Faeces hard [Unknown]
  - Retching [Unknown]
